FAERS Safety Report 5003112-7 (Version None)
Quarter: 2006Q2

REPORT INFORMATION
  Report Type: 
  Country: None (occurrence: None)
  Receive Date: 20060516
  Receipt Date: 20050607
  Transmission Date: 20061013
  Serious: Yes (Hospitalization)
  Sender: FDA-Public Use
  Company Number: US-MERCK-0506USA01081

PATIENT
  Age: 73 Year
  Sex: Female

DRUGS (3)
  1. VIOXX [Suspect]
     Route: 048
     Dates: start: 19990501, end: 20030101
  2. TAMOXIFEN CITRATE [Concomitant]
     Indication: BREAST CANCER
     Route: 065
  3. PREMARIN [Concomitant]
     Route: 048

REACTIONS (18)
  - AORTIC VALVE INCOMPETENCE [None]
  - ARTHROPATHY [None]
  - BREAST CANCER [None]
  - DYSPNOEA [None]
  - FATIGUE [None]
  - HERPES ZOSTER [None]
  - KNEE ARTHROPLASTY [None]
  - MITRAL VALVE INCOMPETENCE [None]
  - NEURALGIA [None]
  - OSTEOPENIA [None]
  - PAIN IN EXTREMITY [None]
  - PALPITATIONS [None]
  - POLLAKIURIA [None]
  - PULMONARY EMBOLISM [None]
  - RHINORRHOEA [None]
  - SINUS TACHYCARDIA [None]
  - SKIN LESION [None]
  - WEIGHT INCREASED [None]
